FAERS Safety Report 17487916 (Version 5)
Quarter: 2020Q4

REPORT INFORMATION
  Report Type: Spontaneous
  Country: US (occurrence: US)
  Receive Date: 20200303
  Receipt Date: 20201112
  Transmission Date: 20210113
  Serious: Yes (Other)
  Sender: FDA-Public Use
  Company Number: US-PFIZER INC-2018118586

PATIENT
  Age: 86 Year
  Sex: Female
  Weight: 63.49 kg

DRUGS (6)
  1. LYRICA [Suspect]
     Active Substance: PREGABALIN
     Indication: NEUROPATHY PERIPHERAL
     Dosage: 500 MG, DAILY (2 AT AM; 1 AT NOON; 2 AT PM)
     Route: 048
  2. LYRICA [Suspect]
     Active Substance: PREGABALIN
     Indication: SENSORY NEUROPATHY HEREDITARY
     Dosage: SOMETIMES TAKES ONE LESS: 3 TO 4 TIMES PER MONTH SHE MAY TAKE ONE LESS
     Route: 048
  3. LYRICA [Suspect]
     Active Substance: PREGABALIN
     Indication: NEUROPATHY PERIPHERAL
     Dosage: 500 MG, DAILY (100 MG FIVE A DAY)
     Route: 048
  4. LYRICA [Suspect]
     Active Substance: PREGABALIN
     Indication: SPINAL STENOSIS
     Dosage: 2500 MG, DAILY (500 MG 5X DAILY)
     Route: 048
  5. LYRICA [Suspect]
     Active Substance: PREGABALIN
     Indication: PAIN
     Dosage: 500 MG, DAILY (1 CAP 5 TIMES A DAY)
     Route: 048
  6. LYRICA [Suspect]
     Active Substance: PREGABALIN
     Dosage: 100 MG, 5X/DAY (QTY: 450 UNITS; DAYS SUPP: 90)

REACTIONS (8)
  - Fall [Unknown]
  - Withdrawal syndrome [Recovered/Resolved]
  - Feeling of body temperature change [Unknown]
  - Drug dependence [Unknown]
  - Intentional product use issue [Unknown]
  - Prescribed overdose [Unknown]
  - Rhinorrhoea [Recovered/Resolved]
  - Peripheral coldness [Unknown]

NARRATIVE: CASE EVENT DATE: 20200225
